FAERS Safety Report 17362173 (Version 2)
Quarter: 2020Q1

REPORT INFORMATION
  Report Type: Spontaneous
  Country: TR (occurrence: TR)
  Receive Date: 20200203
  Receipt Date: 20200325
  Transmission Date: 20200409
  Serious: No
  Sender: FDA-Public Use
  Company Number: TR-ROCHE-2541278

PATIENT
  Age: 53 Year
  Sex: Female

DRUGS (1)
  1. LUCENTIS [Suspect]
     Active Substance: RANIBIZUMAB
     Indication: RETINAL VEIN OCCLUSION
     Dosage: (10 MG/ML)
     Route: 065
     Dates: start: 2015

REACTIONS (2)
  - Ocular hyperaemia [Unknown]
  - Product storage error [Unknown]
